FAERS Safety Report 13010751 (Version 1)
Quarter: 2016Q4

REPORT INFORMATION
  Report Type: Spontaneous
  Country: US (occurrence: US)
  Receive Date: 20161208
  Receipt Date: 20161208
  Transmission Date: 20170207
  Serious: Yes (Hospitalization, Other)
  Sender: FDA-Public Use
  Company Number: US-AMGEN-USASP2016140419

PATIENT
  Age: 55 Year
  Sex: Male
  Weight: 98.24 kg

DRUGS (1)
  1. BLINCYTO [Suspect]
     Active Substance: BLINATUMOMAB
     Indication: ACUTE LYMPHOCYTIC LEUKAEMIA RECURRENT
     Dosage: 9 MCG, EVERY 48 HOURS
     Route: 042
     Dates: start: 20160927, end: 20161013

REACTIONS (6)
  - Pyrexia [Unknown]
  - Hypotension [Unknown]
  - Leukocytosis [Recovered/Resolved]
  - Headache [Not Recovered/Not Resolved]
  - Tremor [Recovering/Resolving]
  - Incorrect drug administration duration [Unknown]

NARRATIVE: CASE EVENT DATE: 20160927
